APPROVED DRUG PRODUCT: CIMETIDINE
Active Ingredient: CIMETIDINE
Strength: 800MG
Dosage Form/Route: TABLET;ORAL
Application: A074329 | Product #001 | TE Code: AB
Applicant: CHARTWELL MOLECULES LLC
Approved: May 17, 1994 | RLD: No | RS: No | Type: RX